FAERS Safety Report 16482259 (Version 1)
Quarter: 2019Q2

REPORT INFORMATION
  Report Type: Spontaneous
  Country: CN (occurrence: CN)
  Receive Date: 20190627
  Receipt Date: 20190627
  Transmission Date: 20190711
  Serious: Yes (Other)
  Sender: FDA-Public Use
  Company Number: CN-ROCHE-2342034

PATIENT
  Age: 40 Year
  Sex: Female

DRUGS (4)
  1. PYROTINIB [Concomitant]
     Active Substance: PYROTINIB
     Indication: BREAST CANCER METASTATIC
  2. HERCEPTIN [Suspect]
     Active Substance: TRASTUZUMAB
     Route: 065
     Dates: start: 201807, end: 201810
  3. XELODA [Suspect]
     Active Substance: CAPECITABINE
     Indication: BREAST CANCER METASTATIC
     Route: 048
     Dates: start: 201807, end: 201810
  4. HERCEPTIN [Suspect]
     Active Substance: TRASTUZUMAB
     Indication: BREAST CANCER METASTATIC
     Route: 065
     Dates: start: 20180101

REACTIONS (3)
  - Epilepsy [Unknown]
  - Metastases to central nervous system [Unknown]
  - Platelet count decreased [Recovering/Resolving]
